FAERS Safety Report 11212814 (Version 1)
Quarter: 2015Q2

REPORT INFORMATION
  Report Type: Spontaneous
  Country: FR (occurrence: FR)
  Receive Date: 20150623
  Receipt Date: 20150623
  Transmission Date: 20150821
  Serious: Yes (Death, Hospitalization)
  Sender: FDA-Public Use
  Company Number: FR-CELGENE-FRA-2015063952

PATIENT
  Age: 62 Year
  Sex: Male

DRUGS (2)
  1. VALACICLOVIR ALMUS [Suspect]
     Active Substance: VALACYCLOVIR HYDROCHLORIDE
     Indication: INFECTION PROPHYLAXIS
     Route: 048
     Dates: start: 20150120
  2. POMALIDOMIDE [Suspect]
     Active Substance: POMALIDOMIDE
     Indication: PLASMA CELL MYELOMA
     Dosage: 4MG 6 CAPSULES
     Route: 048
     Dates: start: 20150117, end: 20150125

REACTIONS (2)
  - Anaphylactic reaction [Recovered/Resolved]
  - Renal failure [Recovered/Resolved]

NARRATIVE: CASE EVENT DATE: 201501
